FAERS Safety Report 9384773 (Version 1)
Quarter: 2013Q3

REPORT INFORMATION
  Report Type: Spontaneous
  Country: US (occurrence: US)
  Receive Date: 20130705
  Receipt Date: 20130705
  Transmission Date: 20140515
  Serious: No
  Sender: FDA-Public Use
  Company Number: US-BAYER-2013-081732

PATIENT
  Age: 16 Year
  Sex: Female
  Weight: 56.69 kg

DRUGS (2)
  1. MIDOL MENSTRUAL COMPLETE FORMULA [Suspect]
     Indication: DYSMENORRHOEA
     Dosage: 2 DF, PRN
     Route: 048
     Dates: start: 2010, end: 2010
  2. MIDOL EXTENDED RELIEF CAPLET [Suspect]
     Dosage: 2 DF, PRN
     Route: 048
     Dates: start: 2010, end: 2010

REACTIONS (1)
  - Drug ineffective [None]
